FAERS Safety Report 4394373-6 (Version None)
Quarter: 2004Q3

REPORT INFORMATION
  Report Type: 
  Country: None (occurrence: None)
  Receive Date: 20040712
  Receipt Date: 20040618
  Transmission Date: 20050211
  Serious: Yes (Death)
  Sender: FDA-Public Use
  Company Number: 200412101JP

PATIENT
  Age: 58 Year
  Sex: Female
  Weight: 56 kg

DRUGS (2)
  1. TAXOTERE [Suspect]
     Indication: PERITONEAL CARCINOMA
     Route: 041
     Dates: start: 20040514, end: 20040514
  2. PARAPLATIN [Suspect]
     Indication: PERITONEAL CARCINOMA
     Route: 041
     Dates: start: 20040514, end: 20040514

REACTIONS (14)
  - ALANINE AMINOTRANSFERASE INCREASED [None]
  - ANOREXIA [None]
  - BLOOD LACTATE DEHYDROGENASE INCREASED [None]
  - BLOOD PRESSURE SYSTOLIC INCREASED [None]
  - CEREBRAL HAEMORRHAGE [None]
  - HAEMATOCRIT DECREASED [None]
  - HAEMOGLOBIN DECREASED [None]
  - HEART RATE DECREASED [None]
  - LOSS OF CONSCIOUSNESS [None]
  - MONOCYTE COUNT DECREASED [None]
  - MYDRIASIS [None]
  - RED BLOOD CELL COUNT DECREASED [None]
  - SUBARACHNOID HAEMORRHAGE [None]
  - WHITE BLOOD CELL COUNT DECREASED [None]
